FAERS Safety Report 18417289 (Version 2)
Quarter: 2021Q1

REPORT INFORMATION
  Report Type: Spontaneous
  Country: US (occurrence: US)
  Receive Date: 20201022
  Receipt Date: 20210123
  Transmission Date: 20210419
  Serious: No
  Sender: FDA-Public Use
  Company Number: 2020SGN02237

PATIENT
  Sex: Female

DRUGS (4)
  1. CAPECITABINE. [Concomitant]
     Active Substance: CAPECITABINE
     Indication: BREAST CANCER FEMALE
  2. HERCEPTIN [Concomitant]
     Active Substance: TRASTUZUMAB
     Indication: BREAST CANCER FEMALE
     Dosage: UNK
     Route: 042
     Dates: start: 20200515, end: 20200515
  3. TUKYSA [Suspect]
     Active Substance: TUCATINIB
     Indication: BREAST CANCER FEMALE
     Dosage: UNK UNK, BID
  4. TUKYSA [Suspect]
     Active Substance: TUCATINIB
     Dosage: 1 DF
     Route: 048

REACTIONS (10)
  - Disease progression [Unknown]
  - Inappropriate schedule of product administration [Unknown]
  - Decreased appetite [Unknown]
  - Hepatic enzyme increased [Recovered/Resolved]
  - Intervertebral disc protrusion [Unknown]
  - Diarrhoea [Unknown]
  - Neck pain [Unknown]
  - Swelling [Unknown]
  - Erythema [Unknown]
  - Arthralgia [Unknown]
